FAERS Safety Report 21191086 (Version 2)
Quarter: 2022Q3

REPORT INFORMATION
  Report Type: Spontaneous
  Country: US (occurrence: US)
  Receive Date: 20220809
  Receipt Date: 20220921
  Transmission Date: 20221027
  Serious: No
  Sender: FDA-Public Use
  Company Number: US-PFIZER INC-202201041646

PATIENT
  Age: 58 Year
  Sex: Male
  Weight: 76.19 kg

DRUGS (3)
  1. PAXLOVID [Suspect]
     Active Substance: NIRMATRELVIR\RITONAVIR
     Indication: COVID-19 treatment
     Dosage: [PF-07321332 300 MG]/[RITONAVIR 100 MG]; 2X/DAY; (FOR 5 DAYS)
     Dates: start: 20220715, end: 20220720
  2. LEVOTHYROXINE [Concomitant]
     Active Substance: LEVOTHYROXINE
     Indication: Thyroid disorder
     Dosage: 75 MG, 1X/DAY
  3. ALEVE [Concomitant]
     Active Substance: NAPROXEN SODIUM
     Indication: Pyrexia
     Dosage: UNK, AS NEEDED
     Dates: start: 20220713

REACTIONS (3)
  - Rash [Recovering/Resolving]
  - Pyrexia [Unknown]
  - Pruritus [Recovered/Resolved]

NARRATIVE: CASE EVENT DATE: 20220101
